FAERS Safety Report 5337260-9 (Version None)
Quarter: 2007Q2

REPORT INFORMATION
  Report Type: 
  Country: None (occurrence: None)
  Receive Date: 20070529
  Receipt Date: 20070523
  Transmission Date: 20071010
  Serious: Yes (Hospitalization)
  Sender: FDA-Public Use
  Company Number: B0467955A

PATIENT
  Age: 87 Year
  Sex: Female
  Weight: 80 kg

DRUGS (9)
  1. ZELITREX [Suspect]
     Indication: HERPES ZOSTER
     Route: 048
     Dates: start: 20070101, end: 20070101
  2. CIFLOX [Suspect]
     Indication: DERMATOSIS
     Route: 065
  3. FLAGYL [Suspect]
     Indication: DERMATOSIS
     Route: 065
  4. ARICEPT [Concomitant]
     Dosage: 10MG PER DAY
     Route: 048
  5. LEVOTHYROXINE SODIUM [Concomitant]
     Dosage: 100MCG PER DAY
     Route: 048
  6. ZOLOFT [Concomitant]
     Dosage: 50MG PER DAY
     Route: 048
  7. RISPERDAL [Concomitant]
     Dosage: 1MG PER DAY
     Route: 048
  8. ATARAX [Concomitant]
     Route: 065
  9. TELFAST [Concomitant]
     Route: 065

REACTIONS (16)
  - ACUTE GENERALISED EXANTHEMATOUS PUSTULOSIS [None]
  - ANAEMIA MACROCYTIC [None]
  - BLOOD FOLATE DECREASED [None]
  - BLOOD THYROID STIMULATING HORMONE INCREASED [None]
  - DERMATOSIS [None]
  - ECZEMA [None]
  - ECZEMA WEEPING [None]
  - EOSINOPHIL COUNT INCREASED [None]
  - FUNGAL INFECTION [None]
  - HYPOALBUMINAEMIA [None]
  - INTERTRIGO [None]
  - PRURIGO [None]
  - RASH ERYTHEMATOUS [None]
  - RASH PUSTULAR [None]
  - SKIN EXFOLIATION [None]
  - TOXIC SKIN ERUPTION [None]
